FAERS Safety Report 12620490 (Version 2)
Quarter: 2021Q2

REPORT INFORMATION
  Report Type: Spontaneous
  Country: US (occurrence: US)
  Receive Date: 20160804
  Receipt Date: 20210529
  Transmission Date: 20210716
  Serious: Yes (Hospitalization, Other)
  Sender: FDA-Public Use
  Company Number: US-JNJFOC-20160720131

PATIENT
  Age: 31 Year
  Sex: Female
  Weight: 57.5 kg

DRUGS (1)
  1. TYLENOL [Suspect]
     Active Substance: ACETAMINOPHEN
     Indication: MALAISE
     Dosage: 4000 MG TAKEN OVER 4 DAY PERIOD
     Route: 065
     Dates: start: 200011, end: 20001113

REACTIONS (3)
  - Product use in unapproved indication [Recovering/Resolving]
  - Off label use [Recovering/Resolving]
  - Acute hepatic failure [Recovered/Resolved]

NARRATIVE: CASE EVENT DATE: 20001112
